FAERS Safety Report 10023529 (Version 2)
Quarter: 2015Q2

REPORT INFORMATION
  Report Type: Spontaneous
  Country: US (occurrence: None)
  Receive Date: 20140102
  Receipt Date: 20150421
  Transmission Date: 20150821
  Serious: Yes (Death, Life-Threatening, Hospitalization, Disabling)
  Sender: FDA-Public Use
  Company Number: 1713747-2013-99982

PATIENT
  Sex: Female

DRUGS (2)
  1. DELFLEX [Suspect]
     Active Substance: CALCIUM CHLORIDE\DEXTROSE MONOHYDRATE\MAGNESIUM CHLORIDE\SODIUM CHLORIDE\SODIUM LACTATE
     Indication: DIALYSIS
     Dates: start: 200908, end: 200912
  2. LIBERTY CYCLER AND CYCLER TUBING [Concomitant]

REACTIONS (2)
  - Sepsis [None]
  - Peritonitis [None]

NARRATIVE: CASE EVENT DATE: 20091220
